FAERS Safety Report 24771984 (Version 1)
Quarter: 2024Q4

REPORT INFORMATION
  Report Type: Spontaneous
  Country: US (occurrence: US)
  Receive Date: 20241224
  Receipt Date: 20241224
  Transmission Date: 20250115
  Serious: No
  Sender: SANOFI AVENTIS
  Company Number: US-SA-2024SA378698

PATIENT
  Age: 61 Year

DRUGS (2)
  1. THYROTROPIN ALFA [Suspect]
     Active Substance: THYROTROPIN ALFA
     Indication: Hypothyroidism
     Dosage: 1.1 MG, TWICE
     Route: 030
  2. THYROTROPIN ALFA [Suspect]
     Active Substance: THYROTROPIN ALFA
     Indication: Hyperthyroidism

REACTIONS (1)
  - Off label use [Unknown]
